FAERS Safety Report 4711074-2 (Version None)
Quarter: 2005Q3

REPORT INFORMATION
  Report Type: 
  Country: None (occurrence: None)
  Receive Date: 20050708
  Receipt Date: 20050628
  Transmission Date: 20060218
  Serious: Yes (Life-Threatening, Hospitalization)
  Sender: FDA-Public Use
  Company Number: 2005094696

PATIENT
  Age: 70 Year
  Sex: Female
  Weight: 49 kg

DRUGS (3)
  1. SOLU-MEDROL [Suspect]
     Indication: ILL-DEFINED DISORDER
     Dosage: 80 MG (1 D), INTRAVENOUS
     Route: 042
     Dates: start: 20050519, end: 20050519
  2. RANITIDINE HCL [Suspect]
     Indication: ILL-DEFINED DISORDER
     Dosage: 300 MG (1 D), INTRAVENOUS
     Route: 042
     Dates: start: 20050519, end: 20050519
  3. ONDANSETRON (ONDANSETRON HYDROCHLORIDE) [Suspect]
     Indication: ILL-DEFINED DISORDER
     Dosage: 8 MG (1 D), INTRAVENOUS
     Route: 042
     Dates: start: 20050519, end: 20050519

REACTIONS (3)
  - ANAPHYLACTIC SHOCK [None]
  - CARDIO-RESPIRATORY ARREST [None]
  - HYPERSENSITIVITY [None]
